FAERS Safety Report 6938459-8 (Version None)
Quarter: 2010Q3

REPORT INFORMATION
  Report Type: 
  Country: None (occurrence: None)
  Receive Date: 20100824
  Receipt Date: 20100812
  Transmission Date: 20110219
  Serious: Yes (Hospitalization, Other)
  Sender: FDA-Public Use
  Company Number: CA-JNJFOC-20100804847

PATIENT
  Sex: Female
  Weight: 70 kg

DRUGS (12)
  1. REMICADE [Suspect]
     Indication: CROHN'S DISEASE
     Route: 042
  2. REMICADE [Suspect]
     Route: 042
  3. CALCIUM [Concomitant]
     Route: 048
  4. ENOXAPARIN SODIUM [Concomitant]
     Route: 058
  5. PREVACID [Concomitant]
     Route: 048
  6. METOPROLOL [Concomitant]
     Route: 048
  7. K DUR [Concomitant]
     Route: 048
  8. CRESTOR [Concomitant]
     Route: 048
  9. VITAMIN D [Concomitant]
     Route: 048
  10. SEROQUEL [Concomitant]
     Route: 048
  11. LASIX [Concomitant]
     Route: 048
  12. SALOFALK ENEMA [Concomitant]
     Route: 054

REACTIONS (3)
  - PULMONARY THROMBOSIS [None]
  - THROMBOSIS [None]
  - TRANSFUSION [None]
